FAERS Safety Report 6100989-9 (Version None)
Quarter: 2009Q1

REPORT INFORMATION
  Report Type: 
  Country: None (occurrence: None)
  Receive Date: 20090304
  Receipt Date: 20090220
  Transmission Date: 20090719
  Serious: Yes (Other)
  Sender: FDA-Public Use
  Company Number: US-ROCHE-615766

PATIENT
  Age: 54 Year
  Sex: Male

DRUGS (2)
  1. XELODA [Suspect]
     Dosage: RECEIVED THREE, 2 WEEKS CYCLES
     Route: 065
     Dates: end: 20090206
  2. OXYCODONE [Concomitant]

REACTIONS (3)
  - ABDOMINAL PAIN UPPER [None]
  - CONSTIPATION [None]
  - PANCREATIC NEOPLASM [None]
